FAERS Safety Report 24878770 (Version 1)
Quarter: 2025Q1

REPORT INFORMATION
  Report Type: Spontaneous
  Country: US (occurrence: None)
  Receive Date: 20250122
  Receipt Date: 20250122
  Transmission Date: 20250409
  Serious: Yes (Hospitalization)
  Sender: FDA-CTU
  Company Number: None

PATIENT
  Age: 74 Year
  Sex: Male

DRUGS (1)
  1. SEMAGLUTIDE [Suspect]
     Active Substance: SEMAGLUTIDE
     Indication: Weight decreased
     Dates: start: 20240822, end: 20241214

REACTIONS (5)
  - Diarrhoea [None]
  - Hypokalaemia [None]
  - Electrocardiogram QT prolonged [None]
  - COVID-19 [None]
  - Gastroenteritis radiation [None]

NARRATIVE: CASE EVENT DATE: 20241214
